FAERS Safety Report 25718139 (Version 1)
Quarter: 2025Q3

REPORT INFORMATION
  Report Type: Spontaneous
  Country: EU (occurrence: EU)
  Receive Date: 20250823
  Receipt Date: 20250823
  Transmission Date: 20251020
  Serious: Yes (Other)
  Sender: CELLTRION
  Company Number: EU-STADA-01411876

PATIENT

DRUGS (12)
  1. ADALIMUMAB [Suspect]
     Active Substance: ADALIMUMAB
     Indication: Erythrodermic psoriasis
     Dosage: EVERY 14 DAYS
     Route: 058
  2. ADALIMUMAB [Suspect]
     Active Substance: ADALIMUMAB
  3. ACITRETIN [Suspect]
     Active Substance: ACITRETIN
     Indication: Psoriasis
     Route: 065
  4. METHOTREXATE [Concomitant]
     Active Substance: METHOTREXATE
     Indication: Psoriasis
     Route: 065
  5. PREDNISONE [Concomitant]
     Active Substance: PREDNISONE
     Indication: Pemphigoid
     Route: 048
     Dates: start: 2022
  6. PREDNISONE [Concomitant]
     Active Substance: PREDNISONE
     Route: 048
     Dates: start: 202401
  7. PREDNISONE [Concomitant]
     Active Substance: PREDNISONE
     Route: 048
     Dates: start: 202405
  8. OMALIZUMAB [Concomitant]
     Active Substance: OMALIZUMAB
     Indication: Pemphigoid
     Dosage: 300 MILLIGRAM, Q4WEEKS
     Route: 058
  9. RISANKIZUMAB [Concomitant]
     Active Substance: RISANKIZUMAB
     Indication: Psoriasis
     Route: 058
  10. DAPSONE [Concomitant]
     Active Substance: DAPSONE
     Indication: Pemphigoid
     Route: 065
     Dates: start: 202206
  11. DAPSONE [Concomitant]
     Active Substance: DAPSONE
     Route: 065
     Dates: start: 202311
  12. DAPSONE [Concomitant]
     Active Substance: DAPSONE
     Route: 065
     Dates: start: 202405

REACTIONS (3)
  - Pemphigoid [Recovered/Resolved]
  - Gastrointestinal disorder [Unknown]
  - Intentional product use issue [Unknown]
